FAERS Safety Report 7407126 (Version 4)
Quarter: 2013Q3

REPORT INFORMATION
  Report Type: Report from Study
  Country: ES (occurrence: ES)
  Receive Date: 20100602
  Receipt Date: 20130715
  Transmission Date: 20140515
  Serious: Yes (Life-Threatening, Hospitalization)
  Sender: FDA-Public Use
  Company Number: ES-ROCHE-706222

PATIENT
  Age: 60 Year
  Sex: Female
  Weight: 70 kg

DRUGS (12)
  1. TRASTUZUMAB [Suspect]
     Indication: BREAST CANCER
     Route: 042
     Dates: start: 20090520
  2. TRASTUZUMAB [Suspect]
     Route: 042
     Dates: start: 20090610, end: 20090903
  3. DOCETAXEL [Suspect]
     Indication: BREAST CANCER
     Dosage: LAST DOSE BEFRE EVENT:3 SEP 09;FORM:VIAL
     Route: 042
     Dates: start: 20090520, end: 20090903
  4. CARBOPLATIN [Suspect]
     Indication: BREAST CANCER
     Dosage: FORM:VIAL;LAST DOSE BEFRE EVENT:3 SEP 09
     Route: 042
     Dates: start: 20090520, end: 20090903
  5. TORASEMIDE [Concomitant]
     Route: 065
     Dates: start: 2009, end: 20110903
  6. ALPRAZOLAM [Concomitant]
     Indication: ANXIETY
     Route: 065
  7. NAPROXEN [Concomitant]
     Indication: PAIN
     Route: 065
  8. CANDESARTAN [Concomitant]
     Indication: HYPERTENSION
     Route: 065
  9. ESPIRONOLACTONA [Concomitant]
     Indication: HYPERTENSION
     Route: 065
     Dates: start: 2009, end: 20110912
  10. DIGOXINE [Concomitant]
     Indication: ARRHYTHMIA PROPHYLAXIS
     Route: 065
     Dates: start: 2009, end: 20110913
  11. CARVEDILOL [Concomitant]
     Indication: HYPERTENSION
     Route: 065
     Dates: start: 2009, end: 20110913
  12. ACETYLSALICYLIC ACID [Concomitant]
     Route: 065
     Dates: start: 20100304

REACTIONS (1)
  - Ischaemic stroke [Recovered/Resolved with Sequelae]
